FAERS Safety Report 9542355 (Version 1)
Quarter: 2013Q3

REPORT INFORMATION
  Report Type: Report from Study
  Country: CA (occurrence: CA)
  Receive Date: 20130923
  Receipt Date: 20130923
  Transmission Date: 20140515
  Serious: Yes (Hospitalization)
  Sender: FDA-Public Use
  Company Number: CA-JNJFOC-20130909697

PATIENT
  Age: 15 Year
  Sex: Female
  Weight: 52 kg

DRUGS (2)
  1. REMICADE [Suspect]
     Indication: COLITIS ULCERATIVE
     Dosage: LOADING DOSE
     Route: 042
     Dates: start: 20130730
  2. PREDNISONE [Concomitant]
     Dosage: TAPERING DOSE OF 5 MG PER WEEK
     Route: 048

REACTIONS (1)
  - Colitis ulcerative [Unknown]
